FAERS Safety Report 14074282 (Version 1)
Quarter: 2017Q4

REPORT INFORMATION
  Report Type: Spontaneous
  Country: FR (occurrence: FR)
  Receive Date: 20171010
  Receipt Date: 20171010
  Transmission Date: 20180321
  Serious: Yes (Other)
  Sender: FDA-Public Use
  Company Number: FR-PFIZER INC-2017429022

PATIENT
  Age: 31 Year
  Sex: Male

DRUGS (3)
  1. LYRICA [Suspect]
     Active Substance: PREGABALIN
     Dosage: 300 MG (1 DOSAGE FORM),  3 TO 4 TIMES DAILY
     Route: 048
     Dates: start: 2013
  2. MYDRIATICUM [Suspect]
     Active Substance: TROPICAMIDE
     Dosage: UNK, 3 TO 4 TIMES DAILY
     Route: 055
  3. COCAINE [Suspect]
     Active Substance: COCAINE
     Dosage: 1 G, 2 TO 3 TIMES WEEKLY
     Route: 055

REACTIONS (3)
  - Impulsive behaviour [Unknown]
  - Withdrawal syndrome [Unknown]
  - Anxiety [Unknown]

NARRATIVE: CASE EVENT DATE: 2013
